FAERS Safety Report 20612903 (Version 4)
Quarter: 2022Q2

REPORT INFORMATION
  Report Type: Other
  Country: PA (occurrence: None)
  Receive Date: 20220318
  Receipt Date: 20220531
  Transmission Date: 20220721
  Serious: Yes (Disabling)
  Sender: FDA-Public Use
  Company Number: PA-ROCHE-3049192

PATIENT
  Age: 63 Year
  Sex: Male
  Weight: 74 kg

DRUGS (3)
  1. ALECTINIB [Suspect]
     Active Substance: ALECTINIB
     Indication: Non-small cell lung cancer
     Dosage: DOSE LAST STUDY DRUG ADMIN PRIOR AE IS 600 MG, DOSE LAST STUDY DRUG ADMINSTART DATE OF MOST RECENT D
     Route: 048
     Dates: start: 20210621
  2. ALECTINIB [Suspect]
     Active Substance: ALECTINIB
     Route: 048
     Dates: start: 20191125
  3. ALECTINIB [Concomitant]
     Active Substance: ALECTINIB
     Indication: Lung neoplasm malignant
     Dates: start: 20191125

REACTIONS (1)
  - Neuropathy peripheral [Recovering/Resolving]

NARRATIVE: CASE EVENT DATE: 20211119
